FAERS Safety Report 6647685 (Version 3)
Quarter: 2013Q2

REPORT INFORMATION
  Report Type: Spontaneous
  Country: US (occurrence: US)
  Receive Date: 20080523
  Receipt Date: 20130611
  Transmission Date: 20140414
  Serious: Yes (Death)
  Sender: FDA-Public Use
  Company Number: US-JNJFOC-20071206194

PATIENT
  Sex: Female
  Weight: 82.56 kg

DRUGS (1)
  1. REMICADE [Suspect]
     Indication: CROHN^S DISEASE
     Dosage: 2 INFUSIONS ON UNSPECIFIED DATES.
     Route: 042

REACTIONS (1)
  - Pneumonia legionella [Fatal]
